FAERS Safety Report 25776993 (Version 1)
Quarter: 2025Q3

REPORT INFORMATION
  Report Type: Spontaneous
  Country: US (occurrence: US)
  Receive Date: 20250909
  Receipt Date: 20250909
  Transmission Date: 20251021
  Serious: No
  Sender: DOMPE FARMACEUTICI
  Company Number: US-FARMAPROD-202409-3340

PATIENT
  Age: 79 Year
  Sex: Female

DRUGS (17)
  1. OXERVATE [Suspect]
     Active Substance: CENEGERMIN-BKBJ
     Indication: Neurotrophic keratopathy
     Route: 047
     Dates: start: 20240905, end: 20241031
  2. OXERVATE [Suspect]
     Active Substance: CENEGERMIN-BKBJ
  3. OZEMPIC [Concomitant]
     Active Substance: SEMAGLUTIDE
  4. CALCIUM 600-VIT D3 [Concomitant]
  5. EZETIMIBE [Concomitant]
     Active Substance: EZETIMIBE
  6. FAMOTIDINE [Concomitant]
     Active Substance: FAMOTIDINE
  7. PRAVASTATIN SODIUM [Concomitant]
     Active Substance: PRAVASTATIN SODIUM
  8. OMEPRAZOLE [Concomitant]
     Active Substance: OMEPRAZOLE
  9. SYNTHROID [Concomitant]
     Active Substance: LEVOTHYROXINE SODIUM
  10. GABAPENTIN [Concomitant]
     Active Substance: GABAPENTIN
  11. DULOXETINE HYDROCHLORIDE [Concomitant]
     Active Substance: DULOXETINE HYDROCHLORIDE
  12. ALBUTEROL SULFATE [Concomitant]
     Active Substance: ALBUTEROL SULFATE
  13. MONTELUKAST SODIUM [Concomitant]
     Active Substance: MONTELUKAST SODIUM
  14. RESTASIS [Concomitant]
     Active Substance: CYCLOSPORINE
  15. LEVOCETIRIZINE DIHYDROCHLORIDE [Concomitant]
     Active Substance: LEVOCETIRIZINE DIHYDROCHLORIDE
  16. MIRALAX [Concomitant]
     Active Substance: POLYETHYLENE GLYCOL 3350
  17. BENEFIBER [Concomitant]
     Active Substance: STARCH, WHEAT

REACTIONS (4)
  - Wrong technique in product usage process [Unknown]
  - Eye pain [Not Recovered/Not Resolved]
  - Photophobia [Not Recovered/Not Resolved]
  - Eye swelling [Unknown]

NARRATIVE: CASE EVENT DATE: 20240906
